FAERS Safety Report 8910160 (Version 2)
Quarter: 2013Q1

REPORT INFORMATION
  Report Type: Spontaneous
  Country: DE (occurrence: DE)
  Receive Date: 20121115
  Receipt Date: 20130117
  Transmission Date: 20140127
  Serious: Yes (Hospitalization, Disabling)
  Sender: FDA-Public Use
  Company Number: DE-MERCK-1211DEU004487

PATIENT
  Age: 42 Year
  Sex: Male
  Weight: 75 kg

DRUGS (6)
  1. VICTRELIS [Suspect]
     Indication: CHRONIC HEPATITIS C
     Dosage: 2400 MG, TID TOTAL DAILY DOSE
     Route: 048
     Dates: start: 20120404, end: 20130110
  2. VICTRELIS [Suspect]
     Dosage: UNK
  3. PEGINTRON [Suspect]
     Indication: CHRONIC HEPATITIS C
     Dosage: UNK, QW
     Dates: start: 20120303, end: 201301
  4. REBETOL [Suspect]
     Indication: CHRONIC HEPATITIS C
     Dosage: 800 MG, QD, TOTAL DAILY DOSE
     Route: 048
     Dates: start: 20120303, end: 201301
  5. BUPRENORPHINE [Concomitant]
     Dosage: 16 MG, QD
  6. COCAINE [Concomitant]
     Dosage: UNK
     Dates: start: 201206

REACTIONS (6)
  - Localised infection [Unknown]
  - Limb operation [Unknown]
  - Intervertebral discitis [Recovered/Resolved with Sequelae]
  - Leukopenia [Unknown]
  - Fatigue [Unknown]
  - Mental disorder [Unknown]
